FAERS Safety Report 21260844 (Version 1)
Quarter: 2022Q3

REPORT INFORMATION
  Report Type: Report from Study
  Country: CA (occurrence: CA)
  Receive Date: 20220826
  Receipt Date: 20220826
  Transmission Date: 20221026
  Serious: Yes (Hospitalization)
  Sender: FDA-Public Use
  Company Number: None

PATIENT
  Age: 37 Year
  Sex: Female

DRUGS (3)
  1. FLUOROURACIL [Suspect]
     Active Substance: FLUOROURACIL
     Indication: Oesophageal carcinoma
     Route: 042
  2. PEMBROLIZUMAB [Suspect]
     Active Substance: PEMBROLIZUMAB
     Indication: Oesophageal carcinoma
     Dosage: 1 EVERY 3 WEEKS
     Route: 042
  3. PEMBROLIZUMAB [Suspect]
     Active Substance: PEMBROLIZUMAB
     Indication: Oesophageal carcinoma
     Dosage: 1 EVERY 3 WEEKS
     Route: 042

REACTIONS (22)
  - Arthralgia [Unknown]
  - Cough [Unknown]
  - Decreased appetite [Unknown]
  - Depressed mood [Unknown]
  - Dyspnoea [Unknown]
  - Fatigue [Unknown]
  - Headache [Unknown]
  - Hypotension [Unknown]
  - Insomnia [Unknown]
  - Malaise [Unknown]
  - Myalgia [Unknown]
  - Nausea [Unknown]
  - Oropharyngeal pain [Unknown]
  - Pain [Unknown]
  - Pleural effusion [Unknown]
  - Product dose omission issue [Unknown]
  - Product use issue [Unknown]
  - Pyrexia [Unknown]
  - Rash pruritic [Unknown]
  - Rhinorrhoea [Unknown]
  - Somnolence [Unknown]
  - Weight fluctuation [Unknown]
